FAERS Safety Report 7911621-3 (Version None)
Quarter: 2011Q4

REPORT INFORMATION
  Report Type: 
  Country: None (occurrence: None)
  Receive Date: 20111114
  Receipt Date: 20111114
  Transmission Date: 20120403
  Serious: Yes (Other)
  Sender: FDA-Public Use
  Company Number: None

PATIENT
  Age: 58 Year
  Sex: Female
  Weight: 65.77 kg

DRUGS (2)
  1. SYNTHROID [Concomitant]
     Indication: AUTOIMMUNE THYROIDITIS
     Dosage: 0.088MG
     Route: 048
     Dates: start: 20090407, end: 20111109
  2. ARIMIDEX [Suspect]
     Indication: BREAST CANCER METASTATIC
     Dosage: 1 MG
     Route: 048
     Dates: start: 20090407, end: 20110807

REACTIONS (2)
  - DRUG INTERACTION [None]
  - HYPERTHYROIDISM [None]
